FAERS Safety Report 8603347 (Version 5)
Quarter: 2013Q3

REPORT INFORMATION
  Report Type: Spontaneous
  Country: US (occurrence: US)
  Receive Date: 20120607
  Receipt Date: 20130718
  Transmission Date: 20140515
  Serious: Yes (Other)
  Sender: FDA-Public Use
  Company Number: US-ASTRAZENECA-2012SE35729

PATIENT
  Age: 55 Year
  Sex: Female
  Weight: 93.4 kg

DRUGS (38)
  1. TOPROL XL [Suspect]
     Indication: EXTRASYSTOLES
     Route: 048
     Dates: start: 2002, end: 2006
  2. TOPROL XL [Suspect]
     Indication: HYPERTENSION
     Route: 048
     Dates: start: 2002, end: 2006
  3. TOPROL XL [Suspect]
     Indication: HEART RATE IRREGULAR
     Route: 048
     Dates: start: 2002, end: 2006
  4. TOPROL XL [Suspect]
     Indication: BLOOD PRESSURE ABNORMAL
     Route: 048
     Dates: start: 2002, end: 2006
  5. TOPROL XL [Suspect]
     Indication: THERAPY CHANGE
     Route: 048
     Dates: start: 2002, end: 2006
  6. TOPROL XL [Suspect]
     Indication: EXTRASYSTOLES
     Route: 048
     Dates: start: 2004, end: 201201
  7. TOPROL XL [Suspect]
     Indication: HYPERTENSION
     Route: 048
     Dates: start: 2004, end: 201201
  8. TOPROL XL [Suspect]
     Indication: HEART RATE IRREGULAR
     Route: 048
     Dates: start: 2004, end: 201201
  9. TOPROL XL [Suspect]
     Indication: BLOOD PRESSURE ABNORMAL
     Route: 048
     Dates: start: 2004, end: 201201
  10. TOPROL XL [Suspect]
     Indication: THERAPY CHANGE
     Route: 048
     Dates: start: 2004, end: 201201
  11. TOPROL XL [Suspect]
     Indication: EXTRASYSTOLES
     Dosage: GENERIC
     Route: 048
     Dates: start: 2006, end: 2011
  12. TOPROL XL [Suspect]
     Indication: HYPERTENSION
     Dosage: GENERIC
     Route: 048
     Dates: start: 2006, end: 2011
  13. TOPROL XL [Suspect]
     Indication: HEART RATE IRREGULAR
     Dosage: GENERIC
     Route: 048
     Dates: start: 2006, end: 2011
  14. TOPROL XL [Suspect]
     Indication: BLOOD PRESSURE ABNORMAL
     Dosage: GENERIC
     Route: 048
     Dates: start: 2006, end: 2011
  15. TOPROL XL [Suspect]
     Indication: THERAPY CHANGE
     Dosage: GENERIC
     Route: 048
     Dates: start: 2006, end: 2011
  16. TOPROL XL [Suspect]
     Indication: EXTRASYSTOLES
     Route: 048
     Dates: start: 201201
  17. TOPROL XL [Suspect]
     Indication: HYPERTENSION
     Route: 048
     Dates: start: 201201
  18. TOPROL XL [Suspect]
     Indication: HEART RATE IRREGULAR
     Route: 048
     Dates: start: 201201
  19. TOPROL XL [Suspect]
     Indication: BLOOD PRESSURE ABNORMAL
     Route: 048
     Dates: start: 201201
  20. TOPROL XL [Suspect]
     Indication: THERAPY CHANGE
     Route: 048
     Dates: start: 201201
  21. TOPROL XL [Suspect]
     Indication: EXTRASYSTOLES
     Route: 048
     Dates: start: 20130625
  22. TOPROL XL [Suspect]
     Indication: HYPERTENSION
     Route: 048
     Dates: start: 20130625
  23. TOPROL XL [Suspect]
     Indication: HEART RATE IRREGULAR
     Route: 048
     Dates: start: 20130625
  24. TOPROL XL [Suspect]
     Indication: BLOOD PRESSURE ABNORMAL
     Route: 048
     Dates: start: 20130625
  25. TOPROL XL [Suspect]
     Indication: THERAPY CHANGE
     Route: 048
     Dates: start: 20130625
  26. METOPROLOL [Suspect]
     Indication: HYPERTENSION
     Dosage: GENERIC
     Route: 048
  27. METOPROLOL [Suspect]
     Indication: HYPERTENSION
     Dosage: GENERIC
     Route: 065
  28. ZOMIG [Suspect]
     Indication: MIGRAINE
     Route: 048
     Dates: start: 2000
  29. ZOMIG [Suspect]
     Indication: MIGRAINE
     Route: 048
     Dates: start: 2001
  30. AMLODIPINE [Suspect]
     Indication: BLOOD PRESSURE ABNORMAL
     Route: 065
  31. PAIN MEDICATION [Suspect]
     Indication: PAIN
     Route: 065
  32. DILTIAZEM [Suspect]
     Route: 065
  33. COZAAR [Suspect]
     Indication: BLOOD PRESSURE ABNORMAL
     Route: 065
     Dates: start: 201305
  34. COZAAR [Suspect]
     Indication: BLOOD PRESSURE ABNORMAL
     Route: 065
  35. COZAAR [Suspect]
     Indication: BLOOD PRESSURE ABNORMAL
     Route: 065
     Dates: end: 20130624
  36. VERAPIMIL [Suspect]
     Indication: BLOOD PRESSURE ABNORMAL
     Route: 065
  37. ANAESTHESIA [Suspect]
     Route: 065
  38. ESTROGEN PATCH [Concomitant]
     Route: 062

REACTIONS (26)
  - Frustration [Unknown]
  - Stress [Unknown]
  - Blood pressure abnormal [Recovered/Resolved]
  - Blood pressure inadequately controlled [Unknown]
  - Insomnia [Unknown]
  - Anxiety [Not Recovered/Not Resolved]
  - Fatigue [Not Recovered/Not Resolved]
  - Nausea [Recovered/Resolved]
  - Intentional drug misuse [Unknown]
  - Intentional drug misuse [Unknown]
  - Drug ineffective [Unknown]
  - Drug hypersensitivity [Recovered/Resolved]
  - Breast cancer [Recovered/Resolved]
  - Hypertension [Unknown]
  - Tremor [Unknown]
  - Impaired driving ability [Recovering/Resolving]
  - Swelling [Unknown]
  - Atrial fibrillation [Unknown]
  - Hallucination [Unknown]
  - Migraine [Unknown]
  - Poor quality sleep [Unknown]
  - Back pain [Unknown]
  - Malaise [Unknown]
  - Cardiac disorder [Unknown]
  - Mydriasis [Recovered/Resolved]
  - Cough [Recovered/Resolved]
